FAERS Safety Report 8893684 (Version 1)
Quarter: 2012Q4

REPORT INFORMATION
  Report Type: 
  Country: US (occurrence: US)
  Receive Date: 20121108
  Receipt Date: 20121108
  Transmission Date: 20130627
  Serious: Yes (Other)
  Sender: FDA-Public Use
  Company Number: US-JNJFOC-20121015523

PATIENT
  Sex: Male
  Weight: 83.92 kg

DRUGS (2)
  1. HALDOL [Suspect]
     Indication: DEPRESSION
     Route: 065
  2. HALDOL [Suspect]
     Indication: SCHIZOAFFECTIVE DISORDER
     Route: 065

REACTIONS (7)
  - Muscle atrophy [Not Recovered/Not Resolved]
  - Abasia [Not Recovered/Not Resolved]
  - Dyskinesia [Unknown]
  - Gait disturbance [Not Recovered/Not Resolved]
  - Bruxism [Not Recovered/Not Resolved]
  - Hypokinesia [Unknown]
  - Muscle rigidity [Not Recovered/Not Resolved]
